FAERS Safety Report 7503619-4 (Version None)
Quarter: 2011Q2

REPORT INFORMATION
  Report Type: 
  Country: None (occurrence: None)
  Receive Date: 20110518
  Receipt Date: 20110503
  Transmission Date: 20111010
  Serious: Yes (Hospitalization)
  Sender: FDA-Public Use
  Company Number: AUR-APL-2011-01546

PATIENT
  Age: 82 Year
  Sex: Male

DRUGS (11)
  1. ACETAMINOPHEN [Concomitant]
  2. ATENOLOL [Concomitant]
  3. SIMVASTATIN [Concomitant]
  4. BENDROFLUAZIDE [Concomitant]
  5. ENALAPRIL MALEATE [Concomitant]
  6. ADCAL-D3 [Concomitant]
  7. ASPIRIN [Concomitant]
  8. CODEINE SULFATE [Concomitant]
  9. OMEPRAZOLE [Concomitant]
  10. ALENDRONATE SODIUM [Suspect]
     Indication: OSTEOPOROSIS
     Dosage: 70MG, ORAL
     Route: 048
     Dates: start: 20110331, end: 20110408
  11. DOCUSATE SODIUM [Concomitant]

REACTIONS (1)
  - RECTAL HAEMORRHAGE [None]
